FAERS Safety Report 4821960-0 (Version None)
Quarter: 2005Q4

REPORT INFORMATION
  Report Type: 
  Country: None (occurrence: None)
  Receive Date: 20051103
  Receipt Date: 20051021
  Transmission Date: 20060501
  Serious: Yes (Death, Other)
  Sender: FDA-Public Use
  Company Number: 2005147229

PATIENT
  Sex: 0

DRUGS (2)
  1. HALCION [Suspect]
     Indication: ILL-DEFINED DISORDER
     Dosage: ORAL
     Route: 048
  2. ALINAMI          N (PROSULTIAMINE) [Concomitant]

REACTIONS (1)
  - MULTIPLE DRUG OVERDOSE [None]
